FAERS Safety Report 10224852 (Version 3)
Quarter: 2014Q2

REPORT INFORMATION
  Report Type: Spontaneous
  Country: US (occurrence: US)
  Receive Date: 20140609
  Receipt Date: 20140626
  Transmission Date: 20141212
  Serious: Yes (Other)
  Sender: FDA-Public Use
  Company Number: US-GLAXOSMITHKLINE-A1076107A

PATIENT
  Age: 86 Year
  Sex: Female

DRUGS (1)
  1. VENTOLIN [Suspect]
     Indication: PRODUCT USED FOR UNKNOWN INDICATION
     Dosage: 90MCG UNKNOWN
     Route: 065
     Dates: start: 20100212

REACTIONS (8)
  - Cerebrovascular accident [Unknown]
  - Concussion [Unknown]
  - Accident [Unknown]
  - Headache [Unknown]
  - Nerve compression [Unknown]
  - Vertigo [Unknown]
  - Walking aid user [Unknown]
  - Fall [Unknown]
